FAERS Safety Report 10219517 (Version 1)
Quarter: 2014Q2

REPORT INFORMATION
  Report Type: Report from Study
  Country: BR (occurrence: BR)
  Receive Date: 20140605
  Receipt Date: 20140605
  Transmission Date: 20141212
  Serious: Yes (Other)
  Sender: FDA-Public Use
  Company Number: BR-BRISTOL-MYERS SQUIBB COMPANY-20941654

PATIENT
  Age: 66 Year
  Sex: Male
  Weight: 76 kg

DRUGS (6)
  1. ERBITUX [Suspect]
     Indication: COLORECTAL CANCER METASTATIC
     Dosage: UNK-UNK:1000MG/DAY
     Dates: start: 20131202
  2. IRINOTECAN [Concomitant]
     Indication: CHEMOTHERAPY
  3. 5-FLUOROURACIL [Concomitant]
     Indication: CHEMOTHERAPY
  4. GABAPENTIN [Concomitant]
     Indication: PARAESTHESIA
  5. ABLOK PLUS [Concomitant]
     Indication: HYPERTENSION
     Dosage: 1DF: 25MG/12.5MG
  6. EZETIMIBE [Concomitant]
     Indication: ABDOMINAL DISCOMFORT
     Dosage: ONCE IN FASTING

REACTIONS (11)
  - Radiotherapy to brain [Unknown]
  - Ageusia [Unknown]
  - Wound [Unknown]
  - Acne [Not Recovered/Not Resolved]
  - Infection [Unknown]
  - Pruritus [Unknown]
  - Skin fissures [Unknown]
  - Haemorrhage [Unknown]
  - Nausea [Unknown]
  - Decreased appetite [Unknown]
  - Weight decreased [Unknown]
